FAERS Safety Report 5164699-7 (Version None)
Quarter: 2006Q4

REPORT INFORMATION
  Report Type: 
  Country: None (occurrence: None)
  Receive Date: 20061205
  Receipt Date: 20060525
  Transmission Date: 20070319
  Serious: Yes (Death, Hospitalization)
  Sender: FDA-Public Use
  Company Number: SG-ELI_LILLY_AND_COMPANY-SG200605005592

PATIENT
  Age: 47 Year
  Sex: Male

DRUGS (2)
  1. ALIMTA [Suspect]
     Indication: LUNG NEOPLASM MALIGNANT
     Dosage: 500 MG/M2, UNK
     Route: 042
     Dates: start: 20060424, end: 20060424
  2. FOLIC ACID [Concomitant]
     Indication: PROPHYLAXIS
     Dosage: 400 MG, UNK

REACTIONS (2)
  - DEATH [None]
  - THROMBOCYTOPENIA [None]
